FAERS Safety Report 13843792 (Version 1)
Quarter: 2017Q3

REPORT INFORMATION
  Report Type: Report from Study
  Country: US (occurrence: US)
  Receive Date: 20170808
  Receipt Date: 20170808
  Transmission Date: 20171127
  Serious: Yes (Hospitalization, Other)
  Sender: FDA-Public Use
  Company Number: PHHY2017US114541

PATIENT
  Age: 25 Year
  Sex: Male
  Weight: 75 kg

DRUGS (6)
  1. NOVOLOG [Concomitant]
     Active Substance: INSULIN ASPART
     Indication: CYSTIC FIBROSIS RELATED DIABETES
     Dosage: 12 U, QD
     Route: 058
     Dates: start: 2006
  2. TOBI [Suspect]
     Active Substance: TOBRAMYCIN
     Indication: CYSTIC FIBROSIS
     Dosage: 300 MG, UNK
     Route: 055
     Dates: start: 20170109, end: 20170623
  3. ALBUTEROL. [Concomitant]
     Active Substance: ALBUTEROL
     Indication: CYSTIC FIBROSIS
     Dosage: 2 DF ( 2 PUFFS), PRN
     Route: 055
     Dates: start: 2007
  4. PULMOZYME [Concomitant]
     Active Substance: DORNASE ALFA
     Indication: CYSTIC FIBROSIS
     Dosage: 2.5 MG, BID
     Route: 055
     Dates: start: 2017
  5. LANTUS [Concomitant]
     Active Substance: INSULIN GLARGINE
     Indication: CYSTIC FIBROSIS RELATED DIABETES
     Dosage: 3 U, QD
     Route: 058
     Dates: start: 2006
  6. TOBI [Suspect]
     Active Substance: TOBRAMYCIN
     Indication: PSEUDOMONAS INFECTION

REACTIONS (8)
  - Pyrexia [Unknown]
  - Sinus congestion [Unknown]
  - Cystic fibrosis [Recovering/Resolving]
  - Condition aggravated [Recovering/Resolving]
  - Sputum purulent [Unknown]
  - Oropharyngeal pain [Unknown]
  - Staphylococcal infection [Unknown]
  - Cough [Unknown]

NARRATIVE: CASE EVENT DATE: 20170624
